FAERS Safety Report 10506692 (Version 3)
Quarter: 2014Q4

REPORT INFORMATION
  Report Type: Spontaneous
  Country: AU (occurrence: None)
  Receive Date: 20141007
  Receipt Date: 20141124
  Transmission Date: 20150528
  Serious: Yes (Other)
  Sender: FDA-Public Use
  Company Number: ADR-2014-01822

PATIENT
  Age: 62 Year
  Sex: Male

DRUGS (2)
  1. BACLOFEN INTRATHECAL [Suspect]
     Active Substance: BACLOFEN
  2. CLONIDINE. [Suspect]
     Active Substance: CLONIDINE

REACTIONS (6)
  - Muscle spasticity [None]
  - Condition aggravated [None]
  - Nausea [None]
  - Device failure [None]
  - Musculoskeletal stiffness [None]
  - Delirium [None]
